FAERS Safety Report 9728425 (Version 1)
Quarter: 2013Q4

REPORT INFORMATION
  Report Type: Spontaneous
  Country: JP (occurrence: JP)
  Receive Date: 20131204
  Receipt Date: 20131204
  Transmission Date: 20140711
  Serious: Yes (Other)
  Sender: FDA-Public Use
  Company Number: JP-ASTELLAS-2013JP013295

PATIENT
  Age: 3 Month
  Sex: 0

DRUGS (7)
  1. PROGRAF [Suspect]
     Indication: PROPHYLAXIS AGAINST GRAFT VERSUS HOST DISEASE
     Route: 065
  2. PROGRAF [Suspect]
     Indication: CHRONIC GRAFT VERSUS HOST DISEASE
  3. CYCLOSPORIN A [Concomitant]
     Indication: PROPHYLAXIS AGAINST GRAFT VERSUS HOST DISEASE
     Route: 065
  4. PREDNISOLONE [Concomitant]
     Indication: PROPHYLAXIS AGAINST GRAFT VERSUS HOST DISEASE
     Route: 065
  5. MYCOPHENOLATE MOFETIL [Concomitant]
     Indication: CHRONIC GRAFT VERSUS HOST DISEASE
     Route: 065
  6. FLUDARABINE [Concomitant]
     Indication: PREMEDICATION
     Dosage: 25 MG/M2, UNKNOWN/D
     Route: 065
  7. MELPHALAN [Concomitant]
     Indication: PREMEDICATION
     Dosage: 40 MG/M2, UNKNOWN/D
     Route: 065

REACTIONS (2)
  - Drug ineffective [Unknown]
  - Chronic graft versus host disease [Unknown]
